FAERS Safety Report 17546826 (Version 4)
Quarter: 2020Q3

REPORT INFORMATION
  Report Type: Spontaneous
  Country: US (occurrence: US)
  Receive Date: 20200316
  Receipt Date: 20200721
  Transmission Date: 20201102
  Serious: No
  Sender: FDA-Public Use
  Company Number: US-SA-2020SA060918

PATIENT

DRUGS (1)
  1. DUPIXENT [Suspect]
     Active Substance: DUPILUMAB
     Indication: PRODUCT USED FOR UNKNOWN INDICATION
     Dosage: 300 MG, QOW
     Route: 058
     Dates: start: 201911

REACTIONS (7)
  - Erythema [Unknown]
  - Eye discharge [Not Recovered/Not Resolved]
  - Pruritus [Unknown]
  - Eyelid skin dryness [Unknown]
  - Eye swelling [Unknown]
  - Dry eye [Unknown]
  - Swelling of eyelid [Unknown]
